FAERS Safety Report 9738967 (Version 2)
Quarter: 2013Q4

REPORT INFORMATION
  Report Type: Spontaneous
  Country: UA (occurrence: UA)
  Receive Date: 20131209
  Receipt Date: 20131209
  Transmission Date: 20140711
  Serious: Yes (Life-Threatening, Other)
  Sender: FDA-Public Use
  Company Number: PHHY2013UA138932

PATIENT
  Age: 70 Year
  Sex: Female

DRUGS (4)
  1. ONBREZ [Suspect]
     Indication: CHRONIC OBSTRUCTIVE PULMONARY DISEASE
     Dosage: 150 MG, QD
     Dates: start: 20131126, end: 20131129
  2. EURESPAL [Suspect]
     Dosage: 80 MG, BID
     Dates: start: 20131126
  3. AMBROXOL [Concomitant]
     Dosage: 30 MG, TID
     Dates: start: 20131126
  4. CETIRIZINE [Concomitant]
     Dosage: 10 MG, QD
     Dates: start: 20131126

REACTIONS (7)
  - Angina pectoris [Not Recovered/Not Resolved]
  - Chest discomfort [Unknown]
  - Chest pain [Unknown]
  - Palpitations [Unknown]
  - Syncope [Unknown]
  - Subendocardial ischaemia [Unknown]
  - Extrasystoles [Unknown]
